FAERS Safety Report 6595948-6 (Version None)
Quarter: 2010Q1

REPORT INFORMATION
  Report Type: 
  Country: None (occurrence: None)
  Receive Date: 20100223
  Receipt Date: 20100209
  Transmission Date: 20100710
  Serious: Yes (Other)
  Sender: FDA-Public Use
  Company Number: PHHY2010JP06427

PATIENT

DRUGS (2)
  1. TASIGNA [Suspect]
     Indication: ACUTE LYMPHOCYTIC LEUKAEMIA
     Dosage: 100 MG DAILY
     Route: 048
     Dates: start: 20090301
  2. SPRYCEL [Suspect]

REACTIONS (3)
  - CHYLOTHORAX [None]
  - DYSPNOEA [None]
  - PLEURAL EFFUSION [None]
